FAERS Safety Report 8838254 (Version 1)
Quarter: 2012Q4

REPORT INFORMATION
  Report Type: 
  Country: US (occurrence: US)
  Receive Date: 20121012
  Receipt Date: 20121012
  Transmission Date: 20130627
  Serious: Yes (Hospitalization, Other)
  Sender: FDA-Public Use
  Company Number: US-ROCHE-1139095

PATIENT
  Sex: Female

DRUGS (6)
  1. PROTROPIN [Suspect]
     Indication: HYPOTHALAMO-PITUITARY DISORDER
     Dosage: 5.8 mg/Week
     Route: 058
     Dates: start: 199407
  2. PROTROPIN [Suspect]
     Dosage: 7.7 mg/Week
     Route: 065
  3. CORTEF [Concomitant]
     Route: 065
  4. SYNTHROID [Concomitant]
     Route: 065
  5. SYNTHROID [Concomitant]
     Route: 065
  6. DEPAKOTE [Concomitant]
     Route: 065

REACTIONS (3)
  - Pneumonia [Unknown]
  - Ear infection [Unknown]
  - Weight increased [Unknown]
